FAERS Safety Report 17396874 (Version 3)
Quarter: 2020Q2

REPORT INFORMATION
  Report Type: Spontaneous
  Country: US (occurrence: US)
  Receive Date: 20200210
  Receipt Date: 20200407
  Transmission Date: 20200713
  Serious: Yes (Other)
  Sender: FDA-Public Use
  Company Number: US-PFIZER INC-2020058093

PATIENT
  Age: 58 Year
  Sex: Male

DRUGS (3)
  1. SUTENT [Suspect]
     Active Substance: SUNITINIB MALATE
     Dosage: 37.5 MG, CYCLIC (DAY 1-28 END 42 DAYS)
     Route: 048
     Dates: start: 20200226
  2. SUTENT [Suspect]
     Active Substance: SUNITINIB MALATE
     Dosage: 37.5 MG, CYCLIC (DAY 1-28 END 42 DAYS)
     Route: 048
     Dates: start: 202001
  3. SUTENT [Suspect]
     Active Substance: SUNITINIB MALATE
     Indication: RENAL CELL CARCINOMA STAGE III
     Dosage: 50 MG, CYCLIC (EVERY DAY ON DAYS 1-28 EVERY 42 DAYS)
     Route: 048
     Dates: start: 20200115, end: 20200123

REACTIONS (8)
  - Pain [Unknown]
  - Diarrhoea [Unknown]
  - Vomiting [Unknown]
  - Impaired driving ability [Unknown]
  - Nausea [Unknown]
  - Asthenia [Unknown]
  - Product dose omission [Unknown]
  - Tinnitus [Unknown]

NARRATIVE: CASE EVENT DATE: 20200123
